FAERS Safety Report 5279764-3 (Version None)
Quarter: 2007Q1

REPORT INFORMATION
  Report Type: 
  Country: None (occurrence: None)
  Receive Date: 20061208
  Receipt Date: 20050525
  Transmission Date: 20070707
  Serious: No
  Sender: FDA-Public Use
  Company Number: 2005UW04465

PATIENT
  Age: 77 Year
  Sex: Male
  Weight: 99.7913 kg

DRUGS (1)
  1. CRESTOR [Suspect]
     Dosage: 2.5 MG DAILY PO
     Route: 048
     Dates: start: 20041001, end: 20041201

REACTIONS (1)
  - ABDOMINAL PAIN [None]
